FAERS Safety Report 4368495-X (Version None)
Quarter: 2004Q2

REPORT INFORMATION
  Report Type: 
  Country: None (occurrence: None)
  Receive Date: 20040602
  Receipt Date: 20031120
  Transmission Date: 20050107
  Serious: No
  Sender: FDA-Public Use
  Company Number: US-GLAXOSMITHKLINE-A0440571A

PATIENT
  Age: 13 Month
  Sex: Female

DRUGS (1)
  1. AUGMENTIN ES-600 [Suspect]
     Indication: EAR INFECTION
     Dosage: 2.5ML TWICE PER DAY
     Route: 048
     Dates: start: 20031014, end: 20031016

REACTIONS (3)
  - DEHYDRATION [None]
  - DIARRHOEA [None]
  - RASH GENERALISED [None]
